FAERS Safety Report 7894070-6 (Version None)
Quarter: 2011Q4

REPORT INFORMATION
  Report Type: 
  Country: None (occurrence: None)
  Receive Date: 20111104
  Receipt Date: 20111101
  Transmission Date: 20120403
  Serious: No
  Sender: FDA-Public Use
  Company Number: US-PFIZER INC-2011267863

PATIENT
  Sex: Female

DRUGS (14)
  1. OMEPRAZOLE [Concomitant]
     Indication: GASTROOESOPHAGEAL REFLUX DISEASE
     Dosage: 20 MG, DAILY
  2. DIOVAN [Concomitant]
     Indication: HYPERTENSION
     Dosage: 80 MG, UNK
     Route: 048
  3. METFORMIN HCL [Suspect]
     Indication: TYPE 2 DIABETES MELLITUS
     Dosage: 500 MG, DAILY
  4. FUROSEMIDE [Concomitant]
     Indication: SPINAL CORD OEDEMA
     Dosage: 20 MG DAILY BY SPLITTING
     Route: 048
  5. BYETTA [Concomitant]
     Indication: TYPE 2 DIABETES MELLITUS
     Dosage: 10 MG, DAILY
  6. EFFEXOR [Concomitant]
     Dosage: 225 MG, UNK
     Route: 048
  7. METHOCARBAMOL [Concomitant]
  8. ACETYLSALICYLIC ACID [Concomitant]
     Indication: CARDIAC DISORDER
     Dosage: 81 MG, DAILY
  9. ISOSORBIDE MONONITRATE [Concomitant]
     Indication: ANGINA PECTORIS
     Dosage: 30 MG, DAILY
  10. LYRICA [Suspect]
     Indication: DIABETIC NEUROPATHY
     Dosage: 75 MG THREE TO FOUR TIMES A DAY
     Route: 048
     Dates: end: 20111001
  11. OMEPRAZOLE [Concomitant]
     Indication: GASTRIC DISORDER
  12. ISOSORBIDE MONONITRATE [Concomitant]
     Indication: CHEST PAIN
  13. SIMVASTATIN [Concomitant]
     Indication: BLOOD CHOLESTEROL ABNORMAL
     Dosage: 80 MG, DAILY
  14. METHOCARBAMOL [Concomitant]
     Indication: MUSCLE SPASMS
     Dosage: 750 MG, DAILY
     Route: 048

REACTIONS (9)
  - PARAESTHESIA [None]
  - NAUSEA [None]
  - WEIGHT DECREASED [None]
  - BACK PAIN [None]
  - HEADACHE [None]
  - HYPOAESTHESIA [None]
  - ARTHRALGIA [None]
  - NECK PAIN [None]
  - PAIN IN EXTREMITY [None]
